FAERS Safety Report 12455384 (Version 1)
Quarter: 2016Q2

REPORT INFORMATION
  Report Type: Spontaneous
  Country: US (occurrence: None)
  Receive Date: 20160609
  Receipt Date: 20160609
  Transmission Date: 20160815
  Serious: Yes (Life-Threatening, Hospitalization)
  Sender: FDA-Public Use
  Company Number: None

PATIENT
  Age: 80 Year
  Sex: Male
  Weight: 89.1 kg

DRUGS (1)
  1. HEPARIN [Suspect]
     Active Substance: HEPARIN SODIUM
     Indication: CARDIOVASCULAR DISORDER
     Dates: start: 20160128, end: 20160131

REACTIONS (2)
  - Heparin-induced thrombocytopenia [None]
  - Haemoglobin decreased [None]

NARRATIVE: CASE EVENT DATE: 20160131
